FAERS Safety Report 17099165 (Version 1)
Quarter: 2019Q4

REPORT INFORMATION
  Report Type: Spontaneous
  Country: US (occurrence: US)
  Receive Date: 20191130
  Receipt Date: 20191130
  Transmission Date: 20200122
  Serious: Yes (Other)
  Sender: FDA-Public Use
  Company Number: None

PATIENT
  Age: 31 Year
  Sex: Female
  Weight: 65.7 kg

DRUGS (1)
  1. CLEARASIL STUBBORN ACNE CONTROL 5IN1 SPOT TREATMENT [Suspect]
     Active Substance: BENZOYL PEROXIDE
     Indication: ACNE
     Dosage: ?          QUANTITY:1 TO ACNE SPOTS;?
     Route: 061
     Dates: start: 20191128, end: 20191130

REACTIONS (4)
  - Eye swelling [None]
  - Urticaria [None]
  - Drug ineffective [None]
  - Swelling face [None]

NARRATIVE: CASE EVENT DATE: 20191129
